FAERS Safety Report 9306614 (Version 2)
Quarter: 2013Q4

REPORT INFORMATION
  Report Type: Spontaneous
  Country: US (occurrence: US)
  Receive Date: 20130523
  Receipt Date: 20131108
  Transmission Date: 20140711
  Serious: Yes (Hospitalization)
  Sender: FDA-Public Use
  Company Number: US-B.I. PHARMACEUTICALS,INC./RIDGEFIELD-2013-BI-14232BP

PATIENT
  Age: 49 Year
  Sex: Female
  Weight: 81.65 kg

DRUGS (5)
  1. PRADAXA [Suspect]
     Indication: ANTICOAGULANT THERAPY
     Dosage: 300 MG
     Route: 048
     Dates: start: 20110126
  2. TIKOSYN [Concomitant]
     Route: 048
     Dates: start: 201003
  3. NEXIUM [Concomitant]
     Dosage: 40 MG
     Route: 048
     Dates: start: 2008
  4. AMBIEN CR [Concomitant]
     Dosage: 12.5 MG
     Route: 048
     Dates: start: 2010
  5. CELEXA [Concomitant]
     Dosage: 20 MG
     Route: 048
     Dates: start: 2008

REACTIONS (2)
  - Pericardial effusion [Unknown]
  - Haemorrhage [Unknown]
